FAERS Safety Report 14057013 (Version 2)
Quarter: 2017Q4

REPORT INFORMATION
  Report Type: Report from Study
  Country: PE (occurrence: PE)
  Receive Date: 20171006
  Receipt Date: 20171011
  Transmission Date: 20180321
  Serious: Yes (Death, Other)
  Sender: FDA-Public Use
  Company Number: PE-BRISTOL-MYERS SQUIBB COMPANY-BMS-2017-088346

PATIENT
  Age: 63 Year
  Sex: Male
  Weight: 59 kg

DRUGS (3)
  1. NIVOLUMAB [Suspect]
     Active Substance: NIVOLUMAB
     Indication: GASTRIC CANCER
     Dosage: 360 MG, UNK
     Route: 042
     Dates: start: 20170824
  2. OXALIPLATIN. [Suspect]
     Active Substance: OXALIPLATIN
     Indication: GASTRIC CANCER
     Dosage: 130 MG/M2, UNK
     Route: 042
     Dates: start: 20170824, end: 20170915
  3. CAPECITABINE. [Suspect]
     Active Substance: CAPECITABINE
     Indication: GASTRIC CANCER
     Dosage: 1500 MG, UNK
     Route: 042
     Dates: start: 20170824, end: 20170901

REACTIONS (1)
  - Death [Fatal]

NARRATIVE: CASE EVENT DATE: 20170918
